FAERS Safety Report 9258821 (Version 2)
Quarter: 2013Q2

REPORT INFORMATION
  Report Type: Spontaneous
  Country: RO (occurrence: RO)
  Receive Date: 20130426
  Receipt Date: 20130607
  Transmission Date: 20140414
  Serious: Yes (Hospitalization)
  Sender: FDA-Public Use
  Company Number: RO-ABBOTT-13P-135-1079701-00

PATIENT
  Age: 78 Year
  Sex: Female
  Weight: 82 kg

DRUGS (14)
  1. HUMIRA [Suspect]
     Indication: PSORIASIS
     Route: 058
     Dates: start: 20110705, end: 20130412
  2. SPIRONOLACTONE [Concomitant]
     Indication: HYPERTENSION
     Route: 048
  3. TROMBOSTOP [Concomitant]
     Indication: ATRIAL FIBRILLATION
     Route: 048
  4. AMARYL [Concomitant]
     Indication: DIABETES MELLITUS
     Route: 048
  5. LEXOTAN [Concomitant]
     Indication: PRODUCT USED FOR UNKNOWN INDICATION
     Route: 048
  6. CIPRALEX [Concomitant]
     Indication: PRODUCT USED FOR UNKNOWN INDICATION
     Route: 048
  7. TRANDOLAPRILUM [Concomitant]
     Indication: HYPERTENSION
     Route: 048
  8. CORYOL [Concomitant]
     Indication: HYPERTENSION
     Route: 048
  9. VERAPAMIL [Concomitant]
     Indication: HYPERTENSION
     Route: 048
  10. VERAPAMIL [Concomitant]
     Indication: ATRIAL FIBRILLATION
  11. VITAMIN B1 [Concomitant]
     Indication: PRODUCT USED FOR UNKNOWN INDICATION
  12. VITAMIN B6 [Concomitant]
     Indication: PRODUCT USED FOR UNKNOWN INDICATION
  13. ARNETIN [Concomitant]
     Indication: PRODUCT USED FOR UNKNOWN INDICATION
  14. METOCLOPRAMID [Concomitant]
     Indication: PRODUCT USED FOR UNKNOWN INDICATION

REACTIONS (9)
  - Pleurisy [Recovered/Resolved]
  - Pericarditis infective [Recovered/Resolved]
  - Pneumonia [Recovering/Resolving]
  - Pleural effusion [Unknown]
  - Pericardial effusion [Unknown]
  - Influenza [Unknown]
  - Pyrexia [Unknown]
  - General physical health deterioration [Unknown]
  - Hepatic cyst [Unknown]
